FAERS Safety Report 7152327-0 (Version None)
Quarter: 2010Q4

REPORT INFORMATION
  Report Type: 
  Country: None (occurrence: None)
  Receive Date: 20101109
  Receipt Date: 20101109
  Transmission Date: 20110411
  Serious: Yes (Hospitalization)
  Sender: FDA-Public Use
  Company Number: None

PATIENT
  Age: 69 Year
  Sex: Female
  Weight: 90.7194 kg

DRUGS (1)
  1. CIPROFLOXACIN HCL [Suspect]
     Indication: URINARY TRACT INFECTION
     Dosage: 500MG 2 X 1 DAILY MOUTH
     Route: 048
     Dates: start: 20100917, end: 20101007

REACTIONS (2)
  - BLOOD PRESSURE INCREASED [None]
  - HEART RATE IRREGULAR [None]
